FAERS Safety Report 12461522 (Version 3)
Quarter: 2016Q4

REPORT INFORMATION
  Report Type: Report from Study
  Country: JP (occurrence: JP)
  Receive Date: 20160613
  Receipt Date: 20161216
  Transmission Date: 20170207
  Serious: Yes (Death, Hospitalization)
  Sender: FDA-Public Use
  Company Number: JP-EISAI MEDICAL RESEARCH-EC-2016-017589

PATIENT
  Age: 53 Year
  Sex: Female
  Weight: 76 kg

DRUGS (16)
  1. LAXOBERON [Concomitant]
     Active Substance: SODIUM PICOSULFATE
  2. CEPHARANTHINE [Concomitant]
     Active Substance: CEPHARANTHINE
  3. MAGMITT [Concomitant]
     Active Substance: MAGNESIUM OXIDE
  4. HALAVEN [Suspect]
     Active Substance: ERIBULIN MESYLATE
     Route: 041
     Dates: start: 20151224, end: 20160114
  5. FENTOS [Concomitant]
     Active Substance: FENTANYL
  6. FERROMIA [Concomitant]
     Active Substance: FERROUS CITRATE
  7. CALONAL [Concomitant]
     Active Substance: ACETAMINOPHEN
  8. POSTERISAN [Concomitant]
     Active Substance: LIDOCAINE
  9. RANMARK [Concomitant]
     Active Substance: DENOSUMAB
  10. HALAVEN [Suspect]
     Active Substance: ERIBULIN MESYLATE
     Indication: INVASIVE BREAST CARCINOMA
     Route: 041
     Dates: start: 20150917, end: 20151029
  11. GLYCYRON [Concomitant]
     Active Substance: AMMONIUM GLYCYRRHIZATE\GLYCINE\METHIONINE
  12. ZYPREXA [Concomitant]
     Active Substance: OLANZAPINE
  13. LEUCON [Concomitant]
  14. LASIX [Concomitant]
     Active Substance: FUROSEMIDE
  15. HALAVEN [Suspect]
     Active Substance: ERIBULIN MESYLATE
     Route: 041
     Dates: start: 20151105, end: 20151210
  16. GASTER [Concomitant]
     Active Substance: FAMOTIDINE

REACTIONS (4)
  - Malignant neoplasm progression [Fatal]
  - Humerus fracture [Not Recovered/Not Resolved]
  - Interstitial lung disease [Recovered/Resolved]
  - Hypercalcaemia [Recovered/Resolved]

NARRATIVE: CASE EVENT DATE: 20160124
